FAERS Safety Report 12092843 (Version 1)
Quarter: 2016Q1

REPORT INFORMATION
  Report Type: Spontaneous
  Country: US (occurrence: None)
  Receive Date: 20160218
  Receipt Date: 20160218
  Transmission Date: 20160526
  Serious: No
  Sender: FDA-Public Use
  Company Number: None

PATIENT
  Age: 72 Year
  Sex: Female
  Weight: 91.17 kg

DRUGS (15)
  1. WELLBUTRIN XL [Suspect]
     Active Substance: BUPROPION HYDROCHLORIDE
     Indication: SMOKING CESSATION THERAPY
     Route: 048
     Dates: start: 20150112, end: 20160112
  2. ALTACE [Concomitant]
     Active Substance: RAMIPRIL
  3. FLUOCINONIDE. [Concomitant]
     Active Substance: FLUOCINONIDE
  4. CLOBETASOL [Concomitant]
     Active Substance: CLOBETASOL
  5. BUPROPION HYDROCHLORIDE XL [Suspect]
     Active Substance: BUPROPION HYDROCHLORIDE
  6. O2 [Concomitant]
  7. COREG [Concomitant]
     Active Substance: CARVEDILOL
  8. CATAPRES [Concomitant]
     Active Substance: CLONIDINE HYDROCHLORIDE
  9. ASA [Concomitant]
     Active Substance: ASPIRIN
  10. CRESTOR [Concomitant]
     Active Substance: ROSUVASTATIN CALCIUM
  11. FLUOCINOLONE ACETONIDE. [Concomitant]
     Active Substance: FLUOCINOLONE ACETONIDE
  12. ALIDEN SHAMPOO SALICYLIC ACID 6% [Concomitant]
  13. LEVIMIR FLEXPEN [Concomitant]
  14. TYLENOL [Concomitant]
     Active Substance: ACETAMINOPHEN
  15. BENADRYL [Concomitant]
     Active Substance: DIPHENHYDRAMINE HYDROCHLORIDE

REACTIONS (7)
  - Pruritus [None]
  - Skin exfoliation [None]
  - Pain [None]
  - Arthralgia [None]
  - Condition aggravated [None]
  - Peripheral swelling [None]
  - Erythema [None]
